FAERS Safety Report 9386776 (Version 1)
Quarter: 2013Q3

REPORT INFORMATION
  Report Type: Spontaneous
  Country: US (occurrence: None)
  Receive Date: 20130703
  Receipt Date: 20130703
  Transmission Date: 20140515
  Serious: Yes (Life-Threatening, Hospitalization, Other)
  Sender: FDA-Public Use
  Company Number: None

PATIENT
  Age: 67 Year
  Sex: Female
  Weight: 63.5 kg

DRUGS (1)
  1. ERIVEDGE [Suspect]
     Indication: BASAL CELL CARCINOMA
     Route: 048
     Dates: start: 20130522, end: 20130626

REACTIONS (8)
  - Syncope [None]
  - Fall [None]
  - Head injury [None]
  - Dehydration [None]
  - Anaemia [None]
  - Hypotension [None]
  - Face injury [None]
  - Drug interaction [None]
